FAERS Safety Report 10765486 (Version 1)
Quarter: 2015Q1

REPORT INFORMATION
  Report Type: Spontaneous
  Country: US (occurrence: None)
  Receive Date: 20150204
  Receipt Date: 20150204
  Transmission Date: 20150721
  Serious: Yes (Other)
  Sender: FDA-Public Use
  Company Number: None

PATIENT
  Age: 71 Year
  Sex: Male
  Weight: 83.92 kg

DRUGS (1)
  1. TAMSULOSIN 0.4 MG [Suspect]
     Active Substance: TAMSULOSIN
     Indication: BENIGN PROSTATIC HYPERPLASIA
     Dosage: 2 CAPS ONCE DAILY TAKEN BY MOUTH
     Route: 048
     Dates: start: 20150201

REACTIONS (4)
  - Drug ineffective [None]
  - Product quality issue [None]
  - Dysuria [None]
  - Product substitution issue [None]

NARRATIVE: CASE EVENT DATE: 20150202
